FAERS Safety Report 9528706 (Version 2)
Quarter: 2013Q3

REPORT INFORMATION
  Report Type: Spontaneous
  Country: US (occurrence: US)
  Receive Date: 20130917
  Receipt Date: 20130917
  Transmission Date: 20140515
  Serious: No
  Sender: FDA-Public Use
  Company Number: US-BANPHARM-20120405

PATIENT
  Age: 87 Year
  Sex: Female
  Weight: 48.99 kg

DRUGS (1)
  1. ZYRTEC LIQUID GELS 10 MG [Suspect]
     Indication: SINUS CONGESTION
     Dosage: 1-2 DF, QD,
     Route: 048
     Dates: start: 20120630

REACTIONS (4)
  - Epistaxis [Unknown]
  - Nasal dryness [Unknown]
  - Therapeutic response unexpected with drug substitution [Unknown]
  - Drug administered to patient of inappropriate age [Unknown]
